FAERS Safety Report 16970966 (Version 1)
Quarter: 2019Q4

REPORT INFORMATION
  Report Type: Spontaneous
  Country: US (occurrence: US)
  Receive Date: 20191028
  Receipt Date: 20191028
  Transmission Date: 20200122
  Serious: Yes (Death)
  Sender: FDA-Public Use
  Company Number: None

PATIENT
  Age: 68 Year
  Sex: Male
  Weight: 72.6 kg

DRUGS (20)
  1. DRONABINOL 2.5 MG [Concomitant]
     Dates: start: 20191016, end: 20191017
  2. FAMOTIDINE 20 MG [Concomitant]
     Active Substance: FAMOTIDINE
     Dates: start: 20191004, end: 20191016
  3. METROPROLOL XL 25 MG [Concomitant]
     Dates: start: 20191004, end: 20191016
  4. PANTOPRAZOLE 40 MG [Concomitant]
     Active Substance: PANTOPRAZOLE SODIUM
     Dates: start: 20191004, end: 20191017
  5. ATORVASTATIN 80 MG [Concomitant]
     Active Substance: ATORVASTATIN
     Dates: start: 20191004, end: 20191016
  6. OLANZAPINE 5-10 MG PRN [Concomitant]
     Dates: start: 20191004, end: 20191016
  7. RISPERIDONE 1-1.25 MG (TID) [Concomitant]
     Dates: start: 20191004, end: 20191016
  8. HYDROCODONE-ACETAMINOPHEN 5-325 MG PRN [Concomitant]
     Dates: start: 20191004, end: 20191014
  9. FERROUS SULFATE EC [Concomitant]
     Dates: start: 20191005, end: 20191016
  10. FINASTERIDE 5 MG [Concomitant]
     Active Substance: FINASTERIDE
     Dates: start: 20191004, end: 20191016
  11. DEPAKOTE DR 500 MG [Concomitant]
     Dates: start: 20191004, end: 20191016
  12. MIRTAZAPINE 7.5-15 MG [Concomitant]
     Dates: start: 20191004, end: 20191016
  13. GABAPENTIN 100 MG (TID) [Concomitant]
     Dates: start: 20191004, end: 20191016
  14. ONDANSETRON 8 MG PRN [Concomitant]
     Dates: start: 20191004, end: 20191016
  15. ESCITALOPRAM [Concomitant]
     Active Substance: ESCITALOPRAM OXALATE
     Dates: start: 20191010, end: 20191016
  16. LEVOTHYROXINE 100 MCG [Concomitant]
     Active Substance: LEVOTHYROXINE
     Dates: start: 20191004, end: 20191016
  17. LORAZEPAM 1 MG PRN [Concomitant]
     Dates: start: 20191004, end: 20191016
  18. PERSERIS [Suspect]
     Active Substance: RISPERIDONE
     Indication: SCHIZOPHRENIA
     Dosage: ?          OTHER FREQUENCY:EVERY 30 DAYS;?
     Route: 058
     Dates: start: 20191015, end: 20191017
  19. DEPAKOTE SPRINKLES 1000 MG [Concomitant]
     Dates: start: 20191004, end: 20191016
  20. FOLIC ACID 1 MG [Concomitant]
     Dates: start: 20191004, end: 20191016

REACTIONS (7)
  - Dyspnoea [None]
  - Aggression [None]
  - Blood pressure decreased [None]
  - Head injury [None]
  - Fall [None]
  - Agitation [None]
  - Unresponsive to stimuli [None]

NARRATIVE: CASE EVENT DATE: 20191017
